FAERS Safety Report 4809446-0 (Version None)
Quarter: 2005Q4

REPORT INFORMATION
  Report Type: 
  Country: None (occurrence: None)
  Receive Date: 20051021
  Receipt Date: 20051012
  Transmission Date: 20060501
  Serious: Yes (Other)
  Sender: FDA-Public Use
  Company Number: 2005094295

PATIENT
  Age: 79 Year
  Sex: Male

DRUGS (14)
  1. TIKOSYN [Suspect]
     Indication: ATRIAL FIBRILLATION
     Dosage: 1 MG (0.5 MG, 2 IN 1 D), ORAL
     Route: 048
  2. ACTONEL [Concomitant]
  3. SPIRONOLACTONE [Concomitant]
  4. CLONAZEPAM [Concomitant]
  5. WARFARIN SODIUM [Concomitant]
  6. FLOMAX [Concomitant]
  7. FUROSEMIDE [Concomitant]
  8. POTASSIUM (POTASSIUM) [Concomitant]
  9. MIDODRINE (MIDRODRINE) [Concomitant]
  10. SYNTHROID [Concomitant]
  11. TOPROL (METOPROLOL) [Concomitant]
  12. ZOFRAN [Concomitant]
  13. LEUCOVORIN CALCIUM [Concomitant]
  14. FLUOROURACIL [Concomitant]

REACTIONS (6)
  - ATRIAL FIBRILLATION [None]
  - COLON CANCER [None]
  - DISEASE RECURRENCE [None]
  - DRUG EFFECT DECREASED [None]
  - PHARMACEUTICAL PRODUCT COMPLAINT [None]
  - STRESS [None]
